FAERS Safety Report 15583368 (Version 1)
Quarter: 2018Q4

REPORT INFORMATION
  Report Type: Spontaneous
  Country: GB (occurrence: GB)
  Receive Date: 20181103
  Receipt Date: 20181103
  Transmission Date: 20190205
  Serious: Yes (Other)
  Sender: FDA-Public Use
  Company Number: GB-TEVA-2018-GB-971134

PATIENT
  Age: 56 Year
  Sex: Male
  Weight: 82.55 kg

DRUGS (2)
  1. AMLODIPINE [Suspect]
     Active Substance: AMLODIPINE BESYLATE
     Indication: HYPERTENSION
     Dosage: 50 MILLIGRAM DAILY;
     Route: 048
     Dates: start: 20180907, end: 20180911
  2. LOSARTAN. [Concomitant]
     Active Substance: LOSARTAN
     Route: 065

REACTIONS (2)
  - Deafness [Recovered/Resolved with Sequelae]
  - Tinnitus [Recovered/Resolved with Sequelae]

NARRATIVE: CASE EVENT DATE: 20180908
